FAERS Safety Report 10445721 (Version 3)
Quarter: 2014Q4

REPORT INFORMATION
  Report Type: Spontaneous
  Country: US (occurrence: US)
  Receive Date: 20140910
  Receipt Date: 20141124
  Transmission Date: 20150528
  Serious: Yes (Other)
  Sender: FDA-Public Use
  Company Number: US-BAYER-2014-135620

PATIENT
  Age: 26 Year
  Sex: Female

DRUGS (4)
  1. ZITHROMAX [Concomitant]
     Active Substance: AZITHROMYCIN DIHYDRATE
  2. ROCEPHIN [Concomitant]
     Active Substance: CEFTRIAXONE SODIUM
  3. MIRENA [Suspect]
     Active Substance: LEVONORGESTREL
     Indication: MENORRHAGIA
     Dosage: 20 MCG/DL, CONT
     Route: 015
     Dates: start: 20090629, end: 20120905
  4. METROGEL [Concomitant]
     Active Substance: METRONIDAZOLE
     Indication: BACTERIAL VAGINOSIS
     Dosage: 1 APPLICATOR-FULL AT BEDTIME FOR 5 DAYS
     Route: 067

REACTIONS (8)
  - Injury [None]
  - Off label use [None]
  - Device issue [None]
  - Uterine perforation [None]
  - Ectopic pregnancy with contraceptive device [None]
  - Pain [None]
  - Drug ineffective [None]
  - Depression [None]

NARRATIVE: CASE EVENT DATE: 20091026
